FAERS Safety Report 9897302 (Version 3)
Quarter: 2014Q1

REPORT INFORMATION
  Report Type: Report from Study
  Country: MX (occurrence: MX)
  Receive Date: 20140214
  Receipt Date: 20140320
  Transmission Date: 20141002
  Serious: Yes (Hospitalization, Other)
  Sender: FDA-Public Use
  Company Number: MX-ORION CORPORATION ORION PHARMA-ENTC2012-0285

PATIENT
  Age: 80 Year
  Sex: Male

DRUGS (7)
  1. STALEVO [Suspect]
     Indication: PARKINSON^S DISEASE
     Dosage: STRENGTH: 50/12.5/200 MG
     Route: 048
  2. EXELON [Suspect]
     Route: 062
     Dates: start: 2009
  3. ALMETEC [Concomitant]
     Route: 065
  4. LYRICA [Concomitant]
     Indication: DEPRESSION
     Route: 065
     Dates: start: 201206
  5. EBIXA [Concomitant]
     Route: 065
     Dates: start: 2011
  6. CYMBALTA [Concomitant]
     Indication: DEPRESSION
     Route: 065
  7. SPIRIVA [Concomitant]
     Route: 065

REACTIONS (4)
  - Spinal column injury [Not Recovered/Not Resolved]
  - Depression [Not Recovered/Not Resolved]
  - Embolism [Recovered/Resolved]
  - Dyspnoea [Not Recovered/Not Resolved]
